FAERS Safety Report 9657386 (Version 1)
Quarter: 2013Q4

REPORT INFORMATION
  Report Type: Spontaneous
  Country: US (occurrence: US)
  Receive Date: 20131030
  Receipt Date: 20131030
  Transmission Date: 20140711
  Serious: No
  Sender: FDA-Public Use
  Company Number: US-PFIZER INC-2013306030

PATIENT
  Age: 78 Year
  Sex: Male

DRUGS (3)
  1. ZYVOX [Suspect]
     Indication: OSTEOMYELITIS
     Dosage: 600 MG, 2X/DAY, EVERY 12 HOURS
     Dates: start: 20131023, end: 201310
  2. ZYVOX [Suspect]
     Indication: LOCALISED INFECTION
  3. OXYGEN [Concomitant]
     Dosage: UNK

REACTIONS (2)
  - Urticaria [Unknown]
  - Dyspnoea [Unknown]
